FAERS Safety Report 20738135 (Version 1)
Quarter: 2022Q2

REPORT INFORMATION
  Report Type: Spontaneous
  Country: FR (occurrence: FR)
  Receive Date: 20220422
  Receipt Date: 20220422
  Transmission Date: 20220721
  Serious: Yes (Hospitalization)
  Sender: FDA-Public Use
  Company Number: None

PATIENT
  Age: 78 Year
  Sex: Female

DRUGS (5)
  1. LANSOPRAZOLE [Suspect]
     Active Substance: LANSOPRAZOLE
     Indication: Dysphagia
     Dosage: DURATION 6DAYS
     Route: 048
     Dates: start: 20220315, end: 20220321
  2. CEFEPIME [Suspect]
     Active Substance: CEFEPIME HYDROCHLORIDE
     Indication: Infection
     Dosage: DURATION 22DAYS
     Route: 042
     Dates: start: 20220221, end: 20220315
  3. VANCOMYCIN [Suspect]
     Active Substance: VANCOMYCIN
     Indication: Infection
     Dosage: DURATION 24DAYS
     Route: 042
     Dates: start: 20220219, end: 20220315
  4. NICARDIPINE HYDROCHLORIDE [Suspect]
     Active Substance: NICARDIPINE HYDROCHLORIDE
     Indication: Hypertension
     Dosage: DURATION 26DAYS
     Route: 048
     Dates: start: 20220223, end: 20220321
  5. FUNGIZONE [Suspect]
     Active Substance: AMPHOTERICIN B
     Indication: Oral candidiasis
     Dosage: STRENGTH:10 PER CENT, DURATION 9DAYS
     Route: 048
     Dates: start: 20220312, end: 20220321

REACTIONS (1)
  - Acute generalised exanthematous pustulosis [Recovered/Resolved]

NARRATIVE: CASE EVENT DATE: 20220319
